FAERS Safety Report 5220836-7 (Version None)
Quarter: 2007Q1

REPORT INFORMATION
  Report Type: 
  Country: None (occurrence: None)
  Receive Date: 20070123
  Receipt Date: 20070112
  Transmission Date: 20070707
  Serious: Yes (Hospitalization)
  Sender: FDA-Public Use
  Company Number: GBWYE162115JAN07

PATIENT
  Age: 53 Year
  Sex: Male

DRUGS (5)
  1. EFFEXOR XR [Suspect]
     Dosage: SEE IMAGE
     Dates: end: 19990701
  2. EFFEXOR XR [Suspect]
     Dosage: SEE IMAGE
     Dates: end: 20000101
  3. EFFEXOR XR [Suspect]
     Dosage: SEE IMAGE
     Dates: end: 20060201
  4. EFFEXOR XR [Suspect]
     Dosage: SEE IMAGE
     Dates: start: 19990101
  5. EFFEXOR XR [Suspect]
     Dosage: SEE IMAGE
     Dates: start: 19990701

REACTIONS (8)
  - DRUG DOSE OMISSION [None]
  - DRUG WITHDRAWAL SYNDROME [None]
  - HEADACHE [None]
  - NAUSEA [None]
  - PARAESTHESIA [None]
  - SELF-MEDICATION [None]
  - TREATMENT NONCOMPLIANCE [None]
  - VISION BLURRED [None]
